FAERS Safety Report 13877353 (Version 3)
Quarter: 2017Q4

REPORT INFORMATION
  Report Type: Report from Study
  Country: US (occurrence: US)
  Receive Date: 20170817
  Receipt Date: 20171212
  Transmission Date: 20180320
  Serious: Yes (Hospitalization, Other)
  Sender: FDA-Public Use
  Company Number: US-GLAXOSMITHKLINE-US2016152142

PATIENT
  Age: 52 Year
  Sex: Female
  Weight: 68.27 kg

DRUGS (34)
  1. AMBRISENTAN [Suspect]
     Active Substance: AMBRISENTAN
     Indication: PULMONARY ARTERIAL HYPERTENSION
     Dosage: 10 MG, QD
     Route: 048
     Dates: start: 20141022, end: 201609
  2. TYVASO [Suspect]
     Active Substance: TREPROSTINIL
     Indication: PULMONARY HYPERTENSION
     Dosage: 72 UG, QID
     Route: 055
     Dates: start: 20140708
  3. TESSALON [Concomitant]
     Active Substance: BENZONATATE
     Dosage: UNK
  4. PRILOSEC [Concomitant]
     Active Substance: OMEPRAZOLE MAGNESIUM
     Dosage: UNK
  5. POTASSIUM BICARBONATE. [Concomitant]
     Active Substance: POTASSIUM BICARBONATE
     Dosage: UNK
  6. VOLTAREN [Concomitant]
     Active Substance: DICLOFENAC SODIUM
     Dosage: UNK
  7. VITAMIN C [Concomitant]
     Active Substance: ASCORBIC ACID
     Dosage: UNK
  8. ADCIRCA [Concomitant]
     Active Substance: TADALAFIL
     Dosage: UNK
  9. IBUPROFEN. [Concomitant]
     Active Substance: IBUPROFEN
     Dosage: UNK
  10. PROCARDIA [Concomitant]
     Active Substance: NIFEDIPINE
     Dosage: UNK
  11. NIFEDIPINE. [Concomitant]
     Active Substance: NIFEDIPINE
     Dosage: UNK
  12. MEFENAMIC ACID. [Concomitant]
     Active Substance: MEFENAMIC ACID
     Dosage: UNK
  13. MIRALAX [Concomitant]
     Active Substance: POLYETHYLENE GLYCOL 3350
     Dosage: UNK
  14. BERAPROST SODIUM [Suspect]
     Active Substance: BERAPROST SODIUM
     Indication: PULMONARY ARTERIAL HYPERTENSION
     Dosage: 2 TAB, QID
     Route: 048
     Dates: start: 20141106
  15. VITAMIN D3 [Concomitant]
     Active Substance: CHOLECALCIFEROL
     Dosage: UNK
  16. TORSEMIDE. [Concomitant]
     Active Substance: TORSEMIDE
     Dosage: UNK
  17. AMBRISENTAN [Suspect]
     Active Substance: AMBRISENTAN
     Indication: SCLERODERMA
     Dosage: UNK
     Route: 048
     Dates: start: 201609
  18. AMBRISENTAN [Suspect]
     Active Substance: AMBRISENTAN
     Dosage: 10 MG, QD
     Route: 048
  19. VELETRI [Suspect]
     Active Substance: EPOPROSTENOL
     Indication: PRODUCT USED FOR UNKNOWN INDICATION
     Dosage: UNK
     Route: 065
  20. ASPIRIN. [Concomitant]
     Active Substance: ASPIRIN
     Dosage: UNK
  21. ATIVAN [Concomitant]
     Active Substance: LORAZEPAM
     Dosage: UNK
  22. ALDACTONE [Concomitant]
     Active Substance: SPIRONOLACTONE
     Dosage: UNK
  23. OXYCODONE [Concomitant]
     Active Substance: OXYCODONE
     Dosage: UNK
  24. POTASSIUM CHLORIDE. [Concomitant]
     Active Substance: POTASSIUM CHLORIDE
     Dosage: UNK
  25. ELIQUIS [Concomitant]
     Active Substance: APIXABAN
     Dosage: UNK
  26. ZOFRAN [Concomitant]
     Active Substance: ONDANSETRON HYDROCHLORIDE
     Dosage: UNK
  27. PANTOPRAZOLE [Concomitant]
     Active Substance: PANTOPRAZOLE
     Dosage: UNK
  28. VENTOLIN HFA [Concomitant]
     Active Substance: ALBUTEROL SULFATE
     Dosage: UNK
  29. EPIPEN [Concomitant]
     Active Substance: EPINEPHRINE
     Dosage: UNK
  30. TYVASO [Suspect]
     Active Substance: TREPROSTINIL
     Dosage: 18-72 UG, QID
     Route: 055
     Dates: start: 20141201
  31. ORENITRAM [Suspect]
     Active Substance: TREPROSTINIL
     Indication: PRODUCT USED FOR UNKNOWN INDICATION
     Dosage: UNK
     Route: 065
  32. AMBRISENTAN [Suspect]
     Active Substance: AMBRISENTAN
     Dosage: 5 MG, QD
     Route: 048
  33. FERROUS SULFATE. [Concomitant]
     Active Substance: FERROUS SULFATE
     Dosage: UNK
  34. OXYGEN. [Concomitant]
     Active Substance: OXYGEN
     Dosage: UNK

REACTIONS (21)
  - Fluid overload [Recovered/Resolved]
  - Epistaxis [Unknown]
  - Oedema peripheral [Recovered/Resolved]
  - Right ventricular failure [Recovered/Resolved]
  - Malaise [Unknown]
  - Depression [Not Recovered/Not Resolved]
  - Catheterisation cardiac [Unknown]
  - Palpitations [Not Recovered/Not Resolved]
  - Dyspnoea [Unknown]
  - Pulmonary hypertension [Not Recovered/Not Resolved]
  - Pericarditis [Recovered/Resolved]
  - Brachiocephalic vein thrombosis [Recovered/Resolved]
  - Headache [Unknown]
  - Urinary tract infection bacterial [Recovered/Resolved]
  - Abdominal discomfort [Recovered/Resolved]
  - Bacteriuria [Unknown]
  - Syncope [Unknown]
  - Dyspepsia [Unknown]
  - Acute kidney injury [Recovered/Resolved]
  - Insomnia [Not Recovered/Not Resolved]
  - Non-cardiac chest pain [Recovered/Resolved]

NARRATIVE: CASE EVENT DATE: 20160811
